FAERS Safety Report 4932830-1 (Version None)
Quarter: 2006Q1

REPORT INFORMATION
  Report Type: 
  Country: None (occurrence: None)
  Receive Date: 20060306
  Receipt Date: 20050726
  Transmission Date: 20060701
  Serious: Yes (Other)
  Sender: FDA-Public Use
  Company Number: US-AMGEN-PRA144067

PATIENT
  Sex: Male

DRUGS (14)
  1. PALIFERMIN [Suspect]
     Indication: MUCOSAL INFLAMMATION
     Route: 040
     Dates: start: 20050709, end: 20050711
  2. PALIFERMIN [Suspect]
     Route: 040
     Dates: start: 20050718, end: 20050720
  3. FILGRASTIM [Suspect]
     Indication: PERIPHERAL BLOOD STEM CELL APHERESIS
     Route: 058
     Dates: start: 20050718, end: 20050725
  4. FLUCONAZOLE [Concomitant]
     Dates: start: 20050712, end: 20050731
  5. TEQUIN [Concomitant]
     Dates: start: 20050712, end: 20050731
  6. VALTREX [Concomitant]
     Dates: start: 20050712
  7. PRILOSEC [Concomitant]
     Dates: start: 20050712
  8. VICODIN [Concomitant]
     Dates: start: 20050721, end: 20050729
  9. DURAGESIC-100 [Concomitant]
     Dates: start: 20050723, end: 20050729
  10. ATIVAN [Concomitant]
  11. ALLOPURINOL [Concomitant]
  12. KYTRIL [Concomitant]
  13. K-DUR 10 [Concomitant]
  14. CEFTRIAXONE [Concomitant]

REACTIONS (1)
  - LYMPHOCYTOSIS [None]
